FAERS Safety Report 9216043 (Version 1)
Quarter: 2013Q2

REPORT INFORMATION
  Report Type: Spontaneous
  Country: GB (occurrence: GB)
  Receive Date: 20130408
  Receipt Date: 20130408
  Transmission Date: 20140414
  Serious: Yes (Other)
  Sender: FDA-Public Use
  Company Number: GB-RANBAXY-2013US-67038

PATIENT
  Age: 72 Year
  Sex: Female

DRUGS (1)
  1. PSEUDOEPHEDRINE [Suspect]
     Indication: NASAL CONGESTION
     Dosage: UNK
     Route: 065

REACTIONS (1)
  - Mania [Recovered/Resolved]
